FAERS Safety Report 18705581 (Version 4)
Quarter: 2023Q1

REPORT INFORMATION
  Report Type: Spontaneous
  Country: JP (occurrence: JP)
  Receive Date: 20210106
  Receipt Date: 20230118
  Transmission Date: 20230417
  Serious: Yes (Other)
  Sender: FDA-Public Use
  Company Number: NVSJ2020JP014599

PATIENT
  Age: 78 Year
  Sex: Female

DRUGS (6)
  1. TAFINLAR [Suspect]
     Active Substance: DABRAFENIB MESYLATE
     Indication: Non-small cell lung cancer
     Dosage: 300 MG
     Route: 048
     Dates: start: 20201218, end: 20201220
  2. TAFINLAR [Suspect]
     Active Substance: DABRAFENIB MESYLATE
     Dosage: 150 MG
     Route: 048
     Dates: start: 20201228, end: 20210106
  3. TAFINLAR [Suspect]
     Active Substance: DABRAFENIB MESYLATE
     Dosage: 150 MG
     Route: 048
     Dates: start: 20210121, end: 20210126
  4. TAFINLAR [Suspect]
     Active Substance: DABRAFENIB MESYLATE
     Dosage: 75 MG
     Route: 048
     Dates: start: 20210203, end: 20210210
  5. MEKINIST [Suspect]
     Active Substance: TRAMETINIB DIMETHYL SULFOXIDE
     Indication: Non-small cell lung cancer
     Dosage: 2 MG
     Route: 048
     Dates: start: 20201218, end: 20201220
  6. MEKINIST [Suspect]
     Active Substance: TRAMETINIB DIMETHYL SULFOXIDE
     Dosage: 2 MG, QOD
     Route: 048
     Dates: start: 20201228, end: 20210106

REACTIONS (15)
  - Hepatic function abnormal [Recovered/Resolved]
  - Pyrexia [Recovered/Resolved]
  - Vomiting [Recovered/Resolved]
  - Hepatic function abnormal [Not Recovered/Not Resolved]
  - Gamma-glutamyltransferase increased [Unknown]
  - Pyrexia [Recovered/Resolved]
  - Vomiting [Unknown]
  - Electrolyte imbalance [Unknown]
  - C-reactive protein increased [Unknown]
  - Pyrexia [Recovered/Resolved]
  - Chills [Unknown]
  - Dizziness [Unknown]
  - Malaise [Unknown]
  - White blood cell count increased [Unknown]
  - Pyrexia [Unknown]

NARRATIVE: CASE EVENT DATE: 20201220
